FAERS Safety Report 6891872-X (Version None)
Quarter: 2010Q3

REPORT INFORMATION
  Report Type: 
  Country: None (occurrence: None)
  Receive Date: 20100731
  Receipt Date: 20071204
  Transmission Date: 20110219
  Serious: Yes (Other)
  Sender: FDA-Public Use
  Company Number: US-PFIZER INC-2007097976

PATIENT
  Sex: Female
  Weight: 163.63 kg

DRUGS (2)
  1. GABAPENTIN [Suspect]
     Indication: NEURALGIA
     Dates: start: 19980101
  2. LYRICA [Concomitant]

REACTIONS (2)
  - DIABETES MELLITUS [None]
  - NEURALGIA [None]
